FAERS Safety Report 12257017 (Version 1)
Quarter: 2016Q2

REPORT INFORMATION
  Report Type: Report from Study
  Country: US (occurrence: US)
  Receive Date: 20160412
  Receipt Date: 20160412
  Transmission Date: 20160815
  Serious: Yes (Death, Other)
  Sender: FDA-Public Use
  Company Number: US-PFIZER INC-2016197594

PATIENT

DRUGS (1)
  1. TETRACYCLINE HCL [Suspect]
     Active Substance: TETRACYCLINE HYDROCHLORIDE
     Indication: PYELONEPHRITIS
     Dosage: TOTAL DOSE 10.0
     Route: 064

REACTIONS (2)
  - Maternal exposure during pregnancy [Fatal]
  - Premature baby [Fatal]
